FAERS Safety Report 7996945-6 (Version None)
Quarter: 2011Q4

REPORT INFORMATION
  Report Type: 
  Country: None (occurrence: None)
  Receive Date: 20111216
  Receipt Date: 20111213
  Transmission Date: 20120403
  Serious: Yes (Disabling)
  Sender: FDA-Public Use
  Company Number: GER/UKI/11/0022320

PATIENT
  Age: 62 Year
  Sex: Male
  Weight: 103 kg

DRUGS (8)
  1. CANDESARTAN CILEXETIL [Concomitant]
  2. ALLOPURINOL [Concomitant]
  3. ATENOLOL [Concomitant]
  4. ATORVASTATIN [Concomitant]
  5. CINCHOCAINE (CINCHOCAINE) [Concomitant]
  6. NICORANDIL (NICORANDIL) [Concomitant]
  7. NAPROXEN [Suspect]
     Indication: INTERMITTENT CLAUDICATION
  8. FUROSEMIDE [Concomitant]

REACTIONS (1)
  - MYALGIA [None]
